FAERS Safety Report 7296163-3 (Version None)
Quarter: 2011Q1

REPORT INFORMATION
  Report Type: 
  Country: None (occurrence: None)
  Receive Date: 20110216
  Receipt Date: 20110210
  Transmission Date: 20110831
  Serious: Yes (Other)
  Sender: FDA-Public Use
  Company Number: DE-PFIZER INC-2011006088

PATIENT
  Age: 12 Year
  Sex: Male

DRUGS (3)
  1. DOXORUBICIN HCL [Suspect]
     Indication: BONE SARCOMA
     Dosage: 75 MG/M2, CYCLIC
  2. METHOTREXATE [Concomitant]
     Indication: BONE SARCOMA
     Dosage: 12 G/M2
  3. CISPLATIN [Suspect]
     Indication: BONE SARCOMA
     Dosage: 120 MG/M2, CYCLIC

REACTIONS (1)
  - RENAL FAILURE ACUTE [None]
